FAERS Safety Report 5601624-6 (Version None)
Quarter: 2008Q1

REPORT INFORMATION
  Report Type: 
  Country: None (occurrence: None)
  Receive Date: 20080124
  Receipt Date: 20070523
  Transmission Date: 20080703
  Serious: No
  Sender: FDA-Public Use
  Company Number: US-BRISTOL-MYERS SQUIBB COMPANY-13789805

PATIENT
  Age: 36 Year
  Sex: Female

DRUGS (4)
  1. AZACTAM [Suspect]
     Indication: URINARY TRACT INFECTION
     Dates: start: 20070418
  2. AZACTAM [Suspect]
     Indication: RESPIRATORY DISORDER
     Dates: start: 20070418
  3. VANCOMYCIN [Concomitant]
  4. PREDNISONE TAB [Concomitant]
     Indication: RESPIRATORY DISORDER

REACTIONS (1)
  - RASH [None]
